FAERS Safety Report 13760174 (Version 8)
Quarter: 2018Q2

REPORT INFORMATION
  Report Type: Report from Study
  Country: DE (occurrence: DE)
  Receive Date: 20170717
  Receipt Date: 20180504
  Transmission Date: 20180711
  Serious: Yes (Hospitalization, Other)
  Sender: FDA-Public Use
  Company Number: DE-INCYTE CORPORATION-2017IN003779

PATIENT

DRUGS (10)
  1. RAMIPRIL. [Concomitant]
     Active Substance: RAMIPRIL
     Indication: HYPERTENSION
     Dosage: 10 MG, QD
     Route: 048
     Dates: start: 20170607
  2. SIMVASTATIN. [Concomitant]
     Active Substance: SIMVASTATIN
     Indication: HYPERLIPIDAEMIA
     Dosage: 20 MG, QD
     Route: 048
     Dates: start: 20170606
  3. ALLOPURINOL. [Concomitant]
     Active Substance: ALLOPURINOL
     Indication: HYPERURICAEMIA
     Dosage: 100 MG, QD
     Route: 048
  4. PANTOPRAZOLE [Concomitant]
     Active Substance: PANTOPRAZOLE
     Indication: GASTRIC PH DECREASED
     Dosage: 40 MG, QD
     Route: 048
     Dates: start: 20170607
  5. JAKAVI [Suspect]
     Active Substance: RUXOLITINIB
     Indication: POLYCYTHAEMIA VERA
     Dosage: 30 MG, QD
     Route: 048
     Dates: start: 20140123, end: 20170608
  6. LEVOTHYROXINE. [Concomitant]
     Active Substance: LEVOTHYROXINE
     Indication: HYPOTHYROIDISM
     Dosage: 50 UG, QD (PER DAY)
     Route: 048
     Dates: start: 20170607
  7. NALOXONE [Concomitant]
     Active Substance: NALOXONE
     Indication: PAIN
     Dosage: 50 MG / 4 MG, BID
     Route: 048
  8. GABAPENTIN. [Concomitant]
     Active Substance: GABAPENTIN
     Indication: PAIN
     Dosage: 300 MG, QD
     Route: 048
     Dates: start: 20170606
  9. METOPROLOL. [Concomitant]
     Active Substance: METOPROLOL
     Indication: HYPERTENSION
     Dosage: 95 MG, BID
     Route: 048
     Dates: start: 20170607
  10. TILIDINE [Concomitant]
     Active Substance: TILIDINE
     Indication: PAIN
     Dosage: 50 MG / 4 MG BID
     Route: 048

REACTIONS (19)
  - Acute kidney injury [Recovered/Resolved]
  - Lung infiltration [Unknown]
  - Adjustment disorder with depressed mood [Unknown]
  - Platelet count decreased [Unknown]
  - Dehydration [Recovered/Resolved]
  - Pain of skin [Unknown]
  - Red blood cell count decreased [Unknown]
  - Pyrexia [Unknown]
  - Pneumonia [Unknown]
  - Herpes zoster [Unknown]
  - White blood cell count decreased [Unknown]
  - Hyperkalaemia [Recovered/Resolved]
  - Thrombophlebitis [Unknown]
  - Muscular weakness [Unknown]
  - Neutrophil count decreased [Unknown]
  - Blood uric acid increased [Unknown]
  - Blood creatinine increased [Unknown]
  - Haemoglobin decreased [Unknown]
  - Haematocrit decreased [Unknown]

NARRATIVE: CASE EVENT DATE: 20141028
